FAERS Safety Report 8784389 (Version 1)
Quarter: 2012Q4

REPORT INFORMATION
  Report Type: 
  Country: FR (occurrence: FR)
  Receive Date: 20120913
  Receipt Date: 20120913
  Transmission Date: 20130627
  Serious: Yes (Other)
  Sender: FDA-Public Use
  Company Number: FR-BRISTOL-MYERS SQUIBB COMPANY-16941346

PATIENT
  Age: 65 Year
  Sex: Male

DRUGS (4)
  1. ONGLYZA TABS [Suspect]
     Dosage: about 1 to 2 months ago
  2. ISOPTINE [Concomitant]
  3. METFORMINE [Concomitant]
  4. ASPEGIC [Concomitant]

REACTIONS (2)
  - Rash [Not Recovered/Not Resolved]
  - Oedema [Not Recovered/Not Resolved]
